FAERS Safety Report 24663364 (Version 1)
Quarter: 2024Q4

REPORT INFORMATION
  Report Type: Report from Study
  Country: CN (occurrence: CN)
  Receive Date: 20241126
  Receipt Date: 20241126
  Transmission Date: 20250115
  Serious: Yes (Death, Other)
  Sender: ROCHE
  Company Number: CN-ROCHE-10000139356

PATIENT

DRUGS (2)
  1. RITUXIMAB [Suspect]
     Active Substance: RITUXIMAB
     Indication: Marginal zone lymphoma
     Route: 065
  2. OBINUTUZUMAB [Suspect]
     Active Substance: OBINUTUZUMAB
     Indication: Marginal zone lymphoma
     Route: 065

REACTIONS (24)
  - Pleural effusion [Unknown]
  - Diarrhoea [Unknown]
  - Nausea [Unknown]
  - Vomiting [Unknown]
  - Oedema [Unknown]
  - Haemorrhage [Unknown]
  - Glucose tolerance impaired [Unknown]
  - Arrhythmia [Unknown]
  - Pyrexia [Unknown]
  - Venous thrombosis [Unknown]
  - Pneumonia [Unknown]
  - Dermatitis [Unknown]
  - Herpes zoster [Unknown]
  - Urinary tract infection [Unknown]
  - Blood creatinine increased [Unknown]
  - Alanine aminotransferase increased [Unknown]
  - Aspartate aminotransferase increased [Unknown]
  - Agranulocytosis [Unknown]
  - Platelet count decreased [Unknown]
  - White blood cell count decreased [Unknown]
  - Neutrophil count decreased [Unknown]
  - COVID-19 [Fatal]
  - Anaemia [Unknown]
  - Hyperuricaemia [Unknown]
